FAERS Safety Report 6088878-X (Version None)
Quarter: 2009Q1

REPORT INFORMATION
  Report Type: 
  Country: None (occurrence: None)
  Receive Date: 20090224
  Receipt Date: 20090214
  Transmission Date: 20090719
  Serious: Yes (Hospitalization, Other)
  Sender: FDA-Public Use
  Company Number: US-AMGEN-QUU334005

PATIENT
  Sex: Male

DRUGS (2)
  1. ENBREL [Suspect]
     Indication: PSORIASIS
     Route: 058
  2. UNSPECIFIED TOPICAL PRODUCT [Concomitant]
     Route: 061

REACTIONS (6)
  - FUNGAL INFECTION [None]
  - FUNGAL SKIN INFECTION [None]
  - GROIN PAIN [None]
  - PNEUMONIA [None]
  - PSYCHOTIC DISORDER [None]
  - RASH PRURITIC [None]
